FAERS Safety Report 4804302-6 (Version None)
Quarter: 2005Q4

REPORT INFORMATION
  Report Type: 
  Country: None (occurrence: None)
  Receive Date: 20051017
  Receipt Date: 20051003
  Transmission Date: 20060501
  Serious: Yes (Death)
  Sender: FDA-Public Use
  Company Number: B0395866A

PATIENT
  Age: 30 Year

DRUGS (2)
  1. LAMICTAL [Suspect]
     Dosage: ORAL
     Route: 048
  2. VALPROIC ACID [Suspect]
     Dosage: ORAL
     Route: 048

REACTIONS (1)
  - ADVERSE DRUG REACTION [None]
